FAERS Safety Report 7934707-6 (Version None)
Quarter: 2011Q4

REPORT INFORMATION
  Report Type: 
  Country: None (occurrence: None)
  Receive Date: 20111122
  Receipt Date: 20111117
  Transmission Date: 20120403
  Serious: Yes (Hospitalization)
  Sender: FDA-Public Use
  Company Number: JP-ABBOTT-11P-087-0854847-00

PATIENT
  Sex: Male
  Weight: 51 kg

DRUGS (22)
  1. KALETRA [Suspect]
     Indication: HIV INFECTION
     Dates: start: 20070802, end: 20100716
  2. ALCOHOL [Suspect]
     Indication: PRODUCT USED FOR UNKNOWN INDICATION
  3. SULFAMETHOXAZOLE AND TRIMETHOPRIM [Concomitant]
     Indication: TOXOPLASMOSIS PROPHYLAXIS
  4. ISOLEUCINE/LEUCINE/VALINE [Concomitant]
     Indication: ALCOHOLIC LIVER DISEASE
     Route: 048
     Dates: start: 20070727, end: 20070830
  5. ABACAVIR SULFATE [Concomitant]
     Indication: HIV INFECTION
     Route: 048
     Dates: start: 20100906
  6. FUROSEMIDE [Concomitant]
     Indication: ALCOHOLIC LIVER DISEASE
  7. LOPERAMIDE HCL [Suspect]
     Indication: PRODUCT USED FOR UNKNOWN INDICATION
     Dates: start: 20090723, end: 20100716
  8. EMTRICITABINE/TENOFOVIR DISOPROXIL FUMARATE [Suspect]
     Indication: HIV INFECTION
     Dates: start: 20070802, end: 20100716
  9. FUROSEMIDE [Concomitant]
  10. SPIRONOLACTONE [Concomitant]
     Indication: ALCOHOLIC LIVER DISEASE
  11. URSODIOL [Concomitant]
     Indication: ALCOHOLIC LIVER DISEASE
  12. SPIRONOLACTONE [Concomitant]
     Indication: ASCITES
     Route: 048
     Dates: start: 20070721, end: 20070806
  13. AMOXICILIN HYDRATE [Concomitant]
     Indication: SYPHILIS
     Route: 048
     Dates: start: 20070705, end: 20070718
  14. URSODIOL [Concomitant]
     Indication: ASCITES
     Route: 048
     Dates: start: 20070721, end: 20070803
  15. RITONAVIR [Concomitant]
     Indication: HIV INFECTION
     Route: 048
     Dates: start: 20100906
  16. LAMIVUDINE [Concomitant]
     Indication: HIV INFECTION
     Route: 048
     Dates: start: 20100906
  17. AMOXICILIN HYDRATE [Concomitant]
     Route: 048
     Dates: start: 20070803, end: 20070806
  18. SULFAMETHOXAZOLE AND TRIMETHOPRIM [Concomitant]
     Indication: PNEUMOCYSTIS JIROVECI PNEUMONIA
     Route: 048
     Dates: start: 20070720, end: 20071017
  19. FUROSEMIDE [Concomitant]
     Indication: ASCITES
     Route: 042
     Dates: start: 20070727, end: 20070802
  20. FUROSEMIDE [Concomitant]
     Route: 048
     Dates: start: 20070803, end: 20070806
  21. ATAZANAVIR SULFATE [Concomitant]
     Indication: HIV INFECTION
     Route: 048
     Dates: start: 20100906
  22. ABACAVIR SULFATE/LAMIVUDINE [Concomitant]
     Indication: HIV INFECTION
     Route: 048
     Dates: start: 20110512

REACTIONS (3)
  - RHABDOMYOLYSIS [None]
  - RENAL FAILURE ACUTE [None]
  - DIARRHOEA [None]
